FAERS Safety Report 4291572-9 (Version None)
Quarter: 2004Q1

REPORT INFORMATION
  Report Type: 
  Country: None (occurrence: None)
  Receive Date: 20040211
  Receipt Date: 20030924
  Transmission Date: 20041129
  Serious: No
  Sender: FDA-Public Use
  Company Number: US-GLAXOSMITHKLINE-A0428073A

PATIENT
  Sex: Female

DRUGS (4)
  1. IMITREX [Suspect]
     Indication: MIGRAINE
     Route: 065
  2. AMERGE [Concomitant]
  3. ANAPROX DS [Concomitant]
     Indication: HEADACHE
     Dosage: 2U PER DAY
  4. UNSPECIFIED MEDICATION [Concomitant]

REACTIONS (1)
  - FEELING ABNORMAL [None]
